FAERS Safety Report 16677404 (Version 1)
Quarter: 2019Q3

REPORT INFORMATION
  Report Type: Spontaneous
  Country: HR (occurrence: HR)
  Receive Date: 20190807
  Receipt Date: 20190807
  Transmission Date: 20191004
  Serious: Yes (Hospitalization)
  Sender: FDA-Public Use
  Company Number: HR-PFIZER INC-2019333791

PATIENT
  Age: 65 Year
  Sex: Female
  Weight: 90 kg

DRUGS (1)
  1. MEDROL [Suspect]
     Active Substance: METHYLPREDNISOLONE
     Dosage: 56 MG, 1X/DAY
     Route: 048
     Dates: start: 20180720

REACTIONS (4)
  - Immobile [Recovered/Resolved with Sequelae]
  - Spinal compression fracture [Recovered/Resolved with Sequelae]
  - Back pain [Recovered/Resolved with Sequelae]
  - Osteoporotic fracture [Recovered/Resolved with Sequelae]

NARRATIVE: CASE EVENT DATE: 20180910
